FAERS Safety Report 5144985-7 (Version None)
Quarter: 2006Q4

REPORT INFORMATION
  Report Type: 
  Country: None (occurrence: None)
  Receive Date: 20061107
  Receipt Date: 20060913
  Transmission Date: 20070319
  Serious: Yes (Hospitalization)
  Sender: FDA-Public Use
  Company Number: BE-BAYER-200614243GDS

PATIENT
  Sex: Male

DRUGS (1)
  1. CIPROFLOXACIN [Suspect]
     Indication: ESCHERICHIA URINARY TRACT INFECTION
     Dosage: UNIT DOSE: 500 MG
     Route: 048
     Dates: start: 20060901, end: 20060901

REACTIONS (3)
  - ADVERSE EVENT [None]
  - NERVOUS SYSTEM DISORDER [None]
  - THROMBOTIC THROMBOCYTOPENIC PURPURA [None]
